FAERS Safety Report 15301374 (Version 1)
Quarter: 2018Q3

REPORT INFORMATION
  Report Type: Report from Study
  Country: US (occurrence: US)
  Receive Date: 20180821
  Receipt Date: 20180821
  Transmission Date: 20181010
  Serious: Yes (Hospitalization)
  Sender: FDA-Public Use
  Company Number: US-TAKEDA-2018TUS024947

PATIENT
  Age: 37 Year
  Sex: Female

DRUGS (1)
  1. PONATINIB [Suspect]
     Active Substance: PONATINIB
     Indication: CHRONIC MYELOID LEUKAEMIA
     Dosage: 45 MG, QD
     Route: 065
     Dates: start: 20180531

REACTIONS (10)
  - Photophobia [Recovered/Resolved]
  - Swelling face [Unknown]
  - Skin exfoliation [Unknown]
  - Eye pain [Recovered/Resolved]
  - Dyspnoea [Unknown]
  - Full blood count decreased [Recovering/Resolving]
  - Lip swelling [Unknown]
  - Lung infiltration [Unknown]
  - Asthenia [Unknown]
  - Dry skin [Unknown]

NARRATIVE: CASE EVENT DATE: 201806
